APPROVED DRUG PRODUCT: METI-DERM
Active Ingredient: PREDNISOLONE
Strength: 0.5%
Dosage Form/Route: CREAM;TOPICAL
Application: N010209 | Product #002
Applicant: SCHERING CORP SUB SCHERING PLOUGH CORP
Approved: Approved Prior to Jan 1, 1982 | RLD: No | RS: No | Type: DISCN